FAERS Safety Report 18241976 (Version 1)
Quarter: 2020Q3

REPORT INFORMATION
  Report Type: Other
  Country: BD (occurrence: BD)
  Receive Date: 20200908
  Receipt Date: 20200908
  Transmission Date: 20201103
  Serious: Yes (Death)
  Sender: FDA-Public Use
  Company Number: BD-B.BRAUN MEDICAL INC.-2089482

PATIENT
  Sex: Female

DRUGS (2)
  1. HEPARIN SODIUM IN DEXTROSE [Suspect]
     Active Substance: HEPARIN SODIUM
     Indication: CARDIAC VALVE PROSTHESIS USER
     Route: 058
  2. WARFARIN SODIUM. [Concomitant]
     Active Substance: WARFARIN SODIUM

REACTIONS (2)
  - Disseminated intravascular coagulation [Fatal]
  - Haemorrhage in pregnancy [Fatal]
